FAERS Safety Report 5092494-6 (Version None)
Quarter: 2006Q3

REPORT INFORMATION
  Report Type: 
  Country: None (occurrence: None)
  Receive Date: 20060830
  Receipt Date: 20060824
  Transmission Date: 20061208
  Serious: Yes (Hospitalization)
  Sender: FDA-Public Use
  Company Number: 2006UW16768

PATIENT
  Age: 48 Year
  Sex: Female
  Weight: 66.7 kg

DRUGS (3)
  1. NEXIUM [Suspect]
     Indication: GASTROOESOPHAGEAL REFLUX DISEASE
     Route: 048
     Dates: start: 20060601, end: 20060802
  2. PRILOSEC [Concomitant]
     Dates: start: 20060301
  3. PROTONIX [Concomitant]
     Dates: start: 20060301

REACTIONS (3)
  - MYOCLONIC EPILEPSY [None]
  - PARAESTHESIA [None]
  - SENSATION OF HEAVINESS [None]
